FAERS Safety Report 4695577-5 (Version None)
Quarter: 2005Q2

REPORT INFORMATION
  Report Type: 
  Country: None (occurrence: None)
  Receive Date: 20050524
  Receipt Date: 20040611
  Transmission Date: 20051028
  Serious: Yes (Death)
  Sender: FDA-Public Use
  Company Number: 2004AP03122

PATIENT
  Age: 16 Year
  Sex: Female
  Weight: 65 kg

DRUGS (3)
  1. PULMICORT [Suspect]
     Indication: ASTHMA
     Route: 055
     Dates: start: 20040503
  2. VENTOLIN [Concomitant]
     Indication: ASTHMA
     Dosage: TAKEN EVERY 4 HOURS WHEN REQUIRED
     Route: 055
     Dates: start: 20040330
  3. AUGMENTIN '125' [Concomitant]
     Indication: LOWER RESPIRATORY TRACT INFECTION
     Dosage: 500/125 BID
     Dates: start: 20040503

REACTIONS (5)
  - ASTHMA [None]
  - BRAIN DEATH [None]
  - CARDIAC ARREST [None]
  - GENERAL PHYSICAL HEALTH DETERIORATION [None]
  - HYPOXIA [None]
